FAERS Safety Report 19166493 (Version 2)
Quarter: 2021Q2

REPORT INFORMATION
  Report Type: Report from Study
  Country: None (occurrence: US)
  Receive Date: 20210422
  Receipt Date: 20210428
  Transmission Date: 20210717
  Serious: Yes (Hospitalization, Other)
  Sender: FDA-Public Use
  Company Number: US-ABBVIE-21K-163-3866478-00

PATIENT
  Sex: Male
  Weight: 70.37 kg

DRUGS (5)
  1. SINEMET [Suspect]
     Active Substance: CARBIDOPA\LEVODOPA
     Indication: PARKINSON^S DISEASE
     Route: 048
  2. LEXAPRO [Concomitant]
     Active Substance: ESCITALOPRAM OXALATE
     Indication: ANXIETY
  3. LEXAPRO [Concomitant]
     Active Substance: ESCITALOPRAM OXALATE
     Indication: DEPRESSION
  4. DUOPA [Suspect]
     Active Substance: CARBIDOPA\LEVODOPA
     Indication: PARKINSON^S DISEASE
     Route: 050
     Dates: start: 20191206
  5. DUOPA [Suspect]
     Active Substance: CARBIDOPA\LEVODOPA
     Dosage: RECENTLY USED 2 CASSETTES OVER 21 HOURS
     Route: 050
     Dates: start: 2019, end: 202104

REACTIONS (11)
  - Confusional state [Recovered/Resolved]
  - Dehydration [Recovered/Resolved]
  - Medication error [Unknown]
  - Mobility decreased [Unknown]
  - Hypophagia [Recovering/Resolving]
  - Anxiety [Recovering/Resolving]
  - Rehabilitation therapy [Unknown]
  - Fluid intake reduced [Recovered/Resolved with Sequelae]
  - Panic attack [Unknown]
  - Dizziness [Recovered/Resolved]
  - Product confusion [Recovered/Resolved]

NARRATIVE: CASE EVENT DATE: 2021
